FAERS Safety Report 13185757 (Version 1)
Quarter: 2017Q1

REPORT INFORMATION
  Report Type: Report from Study
  Country: US (occurrence: US)
  Receive Date: 20170203
  Receipt Date: 20170203
  Transmission Date: 20170428
  Serious: Yes (Other)
  Sender: FDA-Public Use
  Company Number: US-ACTELION-A-NJ2015-122852

PATIENT
  Age: 41 Year
  Sex: Female

DRUGS (4)
  1. OPSUMIT [Suspect]
     Active Substance: MACITENTAN
     Indication: PULMONARY ARTERIAL HYPERTENSION
     Dosage: 10 MG, QD
     Route: 048
     Dates: start: 20150714
  2. OXYGEN. [Concomitant]
     Active Substance: OXYGEN
  3. ADCIRCA [Concomitant]
     Active Substance: TADALAFIL
  4. RIOCIGUAT [Suspect]
     Active Substance: RIOCIGUAT
     Indication: PRODUCT USED FOR UNKNOWN INDICATION
     Route: 065

REACTIONS (23)
  - Alopecia [Unknown]
  - Dizziness [Unknown]
  - Hypertension [Unknown]
  - Heart rate decreased [Unknown]
  - Oxygen saturation decreased [Unknown]
  - Palpitations [Unknown]
  - Visual impairment [Unknown]
  - Fatigue [Unknown]
  - Stress [Unknown]
  - Exposure to mould [Unknown]
  - Hypotension [Unknown]
  - General physical health deterioration [Unknown]
  - Tooth fracture [Unknown]
  - Pyrexia [Unknown]
  - Dyspepsia [Unknown]
  - Disorientation [Unknown]
  - Diarrhoea haemorrhagic [Unknown]
  - Loss of consciousness [Unknown]
  - Blood pressure diastolic decreased [Unknown]
  - Gastrooesophageal reflux disease [Unknown]
  - Feeling abnormal [Unknown]
  - Headache [Unknown]
  - Dyspnoea [Unknown]

NARRATIVE: CASE EVENT DATE: 20170127
